FAERS Safety Report 10640936 (Version 1)
Quarter: 2014Q4

REPORT INFORMATION
  Report Type: Spontaneous
  Country: US (occurrence: None)
  Receive Date: 20141208
  Receipt Date: 20141208
  Transmission Date: 20150529
  Serious: Yes (Hospitalization)
  Sender: FDA-Public Use
  Company Number: None

PATIENT
  Age: 8 Year
  Sex: Female
  Weight: 27.22 kg

DRUGS (1)
  1. AMANTADINE [Suspect]
     Active Substance: AMANTADINE
     Indication: CENTRAL NERVOUS SYSTEM LESION
     Dosage: AM 2-100 MG, 1:30 PM-1 PILL 7:30 AM + 1:30 PM
     Route: 048
     Dates: start: 20131216, end: 20141023

REACTIONS (12)
  - Nervous system disorder [None]
  - Immunodeficiency [None]
  - Sydenham^s chorea [None]
  - Seizure [None]
  - Learning disorder [None]
  - Affective disorder [None]
  - Sleep apnoea syndrome [None]
  - Astigmatism [None]
  - Migraine [None]
  - Corneal oedema [None]
  - Anxiety [None]
  - Eye inflammation [None]

NARRATIVE: CASE EVENT DATE: 20140923
